FAERS Safety Report 7726820-3 (Version None)
Quarter: 2011Q3

REPORT INFORMATION
  Report Type: 
  Country: None (occurrence: None)
  Receive Date: 20110902
  Receipt Date: 20110826
  Transmission Date: 20111222
  Serious: Yes (Hospitalization)
  Sender: FDA-Public Use
  Company Number: FR-GLAXOSMITHKLINE-B0742487A

PATIENT
  Age: 48 Year
  Sex: Female

DRUGS (5)
  1. LAMICTAL [Suspect]
     Indication: DEPRESSION
     Route: 048
     Dates: start: 20110711, end: 20110806
  2. SOTALOL HCL [Concomitant]
     Dosage: 80MG UNKNOWN
     Route: 065
  3. ACARBOSE [Concomitant]
     Dosage: 50MG UNKNOWN
     Route: 065
  4. ECAZIDE [Concomitant]
     Route: 065
  5. ZOCOR [Concomitant]
     Dosage: 20MG UNKNOWN
     Route: 065

REACTIONS (8)
  - ODYNOPHAGIA [None]
  - STEVENS-JOHNSON SYNDROME [None]
  - RASH [None]
  - LIP BLISTER [None]
  - LIP OEDEMA [None]
  - CHEILITIS [None]
  - SKIN DISCOLOURATION [None]
  - SKIN LESION [None]
